FAERS Safety Report 25606352 (Version 1)
Quarter: 2025Q3

REPORT INFORMATION
  Report Type: Report from Study
  Country: CN (occurrence: CN)
  Receive Date: 20250725
  Receipt Date: 20250725
  Transmission Date: 20251020
  Serious: Yes (Death, Other)
  Sender: SANOFI AVENTIS
  Company Number: CN-DialogSolutions-SAAVPROD-PI802497-C4

PATIENT
  Sex: Female

DRUGS (4)
  1. ANTI-THYMOCYTE GLOBULIN (RABBIT) NOS [Suspect]
     Active Substance: LAPINE T-LYMPHOCYTE IMMUNE GLOBULIN
     Indication: Aplastic anaemia
     Dosage: UNK UNK, QD, ADMINISTERED AT A DOSAGE OF 3-5 MG/KG/DAY
  2. CYCLOSPORINE [Suspect]
     Active Substance: CYCLOSPORINE
     Indication: Aplastic anaemia
     Dosage: UNK UNK, QD, ADMINISTERED AT A DOSAGE OF 3-5 MG/KG/DAY, AND THE TROUGH PLASMA BLOOD CONCENTRATION WA
  3. AVATROMBOPAG [Suspect]
     Active Substance: AVATROMBOPAG
     Indication: Aplastic anaemia
     Dosage: 60 MG, QD, WITH DOSE ADJUSTMENTS BASED ON THE PLT (PLATELET) COUNT
     Route: 048
  4. POSACONAZOLE [Concomitant]
     Active Substance: POSACONAZOLE
     Indication: Infection prophylaxis

REACTIONS (5)
  - Cardiopulmonary failure [Fatal]
  - Pneumonia bacterial [Fatal]
  - Sepsis [Fatal]
  - General physical health deterioration [Fatal]
  - Septic shock [Fatal]
